FAERS Safety Report 9387890 (Version 2)
Quarter: 2013Q3

REPORT INFORMATION
  Report Type: Spontaneous
  Country: US (occurrence: None)
  Receive Date: 20130701
  Receipt Date: 20130819
  Transmission Date: 20140515
  Serious: Yes (Other)
  Sender: FDA-Public Use
  Company Number: 2013P1010272

PATIENT
  Age: 19 Year
  Sex: Male

DRUGS (1)
  1. MYORISAN [Suspect]
     Indication: ACNE CYSTIC
     Dates: start: 20130517, end: 20130619

REACTIONS (3)
  - Depressed mood [None]
  - Myalgia [None]
  - Arthralgia [None]
